FAERS Safety Report 6540058-7 (Version None)
Quarter: 2010Q1

REPORT INFORMATION
  Report Type: 
  Country: None (occurrence: None)
  Receive Date: 20100115
  Receipt Date: 20100108
  Transmission Date: 20100710
  Serious: Yes (Other)
  Sender: FDA-Public Use
  Company Number: AU-JNJCH-2010000526

PATIENT

DRUGS (1)
  1. CODRAL NF COUGH + COLD+FLU DAY/NIGHT [Suspect]
     Indication: DRUG USE FOR UNKNOWN INDICATION
     Dosage: TEXT:UNSPECIFIED
     Route: 048

REACTIONS (2)
  - ALCOHOL POISONING [None]
  - IMPAIRED DRIVING ABILITY [None]
